FAERS Safety Report 5356659-8 (Version None)
Quarter: 2007Q2

REPORT INFORMATION
  Report Type: 
  Country: None (occurrence: None)
  Receive Date: 20070530
  Receipt Date: 20061109
  Transmission Date: 20071010
  Serious: Yes (Other)
  Sender: FDA-Public Use
  Company Number: US200608005703

PATIENT
  Age: 58 Year
  Sex: Male
  Weight: 106.1 kg

DRUGS (5)
  1. ZYPREXA [Suspect]
     Dosage: 10 MG
     Dates: start: 20020101, end: 20051001
  2. LAMICTAL [Concomitant]
  3. BUPROPION HCL [Concomitant]
  4. TENORMIN /NEZ/ (ATENOLOL) [Concomitant]
  5. CORTISONE ACETATE [Concomitant]

REACTIONS (3)
  - HYPERGLYCAEMIA [None]
  - INSULIN-REQUIRING TYPE II DIABETES MELLITUS [None]
  - PANCREATITIS [None]
